FAERS Safety Report 23185346 (Version 1)
Quarter: 2023Q4

REPORT INFORMATION
  Report Type: Spontaneous
  Country: US (occurrence: US)
  Receive Date: 20231115
  Receipt Date: 20231115
  Transmission Date: 20240110
  Serious: Yes (Hospitalization, Other)
  Sender: FDA-Public Use
  Company Number: US-SANDOZ-SDZ2023US053333

PATIENT
  Sex: Female

DRUGS (1)
  1. TREPROSTINIL [Suspect]
     Active Substance: TREPROSTINIL
     Indication: Pulmonary arterial hypertension
     Dosage: 50NG/KG/MIN, CONT
     Route: 042
     Dates: start: 202011

REACTIONS (3)
  - Central venous catheter removal [Unknown]
  - Pneumonia [Unknown]
  - Oxygen saturation decreased [Unknown]
